FAERS Safety Report 7875538-5 (Version None)
Quarter: 2011Q4

REPORT INFORMATION
  Report Type: 
  Country: None (occurrence: None)
  Receive Date: 20111031
  Receipt Date: 20111026
  Transmission Date: 20120403
  Serious: Yes (Life-Threatening, Hospitalization)
  Sender: FDA-Public Use
  Company Number: PHHY2011FR94687

PATIENT
  Sex: Male

DRUGS (2)
  1. VOLTAREN [Suspect]
     Indication: ARTHRALGIA
     Dosage: 1 DF, QD
     Route: 048
     Dates: start: 20110814, end: 20110815
  2. VOLTAREN [Suspect]
     Indication: ARTHRALGIA
     Dosage: 1 %, UNK
     Route: 061
     Dates: start: 20110814, end: 20110815

REACTIONS (4)
  - SKIN NECROSIS [None]
  - STREPTOCOCCAL SEPSIS [None]
  - BLISTER [None]
  - PURPURA [None]
